FAERS Safety Report 21872658 (Version 1)
Quarter: 2023Q1

REPORT INFORMATION
  Report Type: Spontaneous
  Country: US (occurrence: US)
  Receive Date: 20230117
  Receipt Date: 20230117
  Transmission Date: 20230418
  Serious: Yes (Death, Hospitalization)
  Sender: FDA-Public Use
  Company Number: US-BAYER-2023A002810

PATIENT
  Age: 26 Year
  Sex: Female

DRUGS (6)
  1. ASPIRIN [Suspect]
     Active Substance: ASPIRIN
     Dosage: UNK
     Route: 048
  2. PROPRANOLOL [Suspect]
     Active Substance: PROPRANOLOL HYDROCHLORIDE
     Route: 048
  3. DOXEPIN [Suspect]
     Active Substance: DOXEPIN
     Route: 048
  4. OLANZAPINE [Suspect]
     Active Substance: OLANZAPINE
     Route: 048
  5. CARIPRAZINE [Suspect]
     Active Substance: CARIPRAZINE
     Route: 048
  6. ATOMOXETINE [Suspect]
     Active Substance: ATOMOXETINE
     Route: 048

REACTIONS (2)
  - Toxicity to various agents [Fatal]
  - Intentional overdose [Fatal]
